FAERS Safety Report 17924704 (Version 1)
Quarter: 2020Q2

REPORT INFORMATION
  Report Type: Report from Study
  Country: None (occurrence: US)
  Receive Date: 20200622
  Receipt Date: 20200622
  Transmission Date: 20200714
  Serious: Yes (Hospitalization)
  Sender: FDA-Public Use
  Company Number: US-ABBVIE-20K-163-3371442-00

PATIENT
  Sex: Male

DRUGS (2)
  1. HUMIRA [Suspect]
     Active Substance: ADALIMUMAB
     Indication: COLITIS ULCERATIVE
     Route: 058
  2. HUMIRA [Suspect]
     Active Substance: ADALIMUMAB
     Indication: CROHN^S DISEASE

REACTIONS (6)
  - Respiratory disorder [Unknown]
  - Fall [Recovering/Resolving]
  - Hypotension [Recovering/Resolving]
  - Cardiac disorder [Unknown]
  - Asthenia [Recovering/Resolving]
  - Dysuria [Not Recovered/Not Resolved]
